FAERS Safety Report 24803902 (Version 1)
Quarter: 2025Q1

REPORT INFORMATION
  Report Type: Spontaneous
  Country: US (occurrence: US)
  Receive Date: 20250103
  Receipt Date: 20250103
  Transmission Date: 20250408
  Serious: No
  Sender: SANOFI AVENTIS
  Company Number: US-SA-2024SA385085

PATIENT
  Age: 42 Year
  Sex: Female
  Weight: 47.73 kg

DRUGS (3)
  1. DUPIXENT [Suspect]
     Active Substance: DUPILUMAB
     Indication: Dermatitis atopic
     Dosage: 300 MG (1 SYRINGE), QOW
     Route: 058
     Dates: start: 201810
  2. POTASSIUM [Concomitant]
     Active Substance: POTASSIUM
  3. WELLBUTRIN [Concomitant]
     Active Substance: BUPROPION HYDROCHLORIDE

REACTIONS (2)
  - Asthma [Unknown]
  - Rash [Unknown]

NARRATIVE: CASE EVENT DATE: 20241201
